FAERS Safety Report 12430619 (Version 2)
Quarter: 2016Q2

REPORT INFORMATION
  Report Type: Spontaneous
  Country: KW (occurrence: KW)
  Receive Date: 20160602
  Receipt Date: 20160614
  Transmission Date: 20160815
  Serious: Yes (Other)
  Sender: FDA-Public Use
  Company Number: KW-BAXALTA-2016BLT003688

PATIENT
  Age: 28 Week
  Weight: 1 kg

DRUGS (1)
  1. KIOVIG [Suspect]
     Active Substance: HUMAN IMMUNOGLOBULIN G
     Indication: PRODUCT USED FOR UNKNOWN INDICATION
     Dosage: 250 MG/KG, 1X A DAY, DOSE DIVIDED EVERY 6 HOURS
     Route: 065

REACTIONS (3)
  - Skin discolouration [Unknown]
  - Incorrect drug administration rate [Unknown]
  - Gangrene [Unknown]
